FAERS Safety Report 9255305 (Version 1)
Quarter: 2013Q1

REPORT INFORMATION
  Report Type: Spontaneous
  Country: US (occurrence: None)
  Receive Date: 20121212
  Receipt Date: 20121212
  Transmission Date: 20140127
  Serious: No
  Sender: FDA-Public Use
  Company Number: 1208USA011980

PATIENT
  Age: 46 Year
  Sex: Female
  Weight: 122.47 kg

DRUGS (5)
  1. VICTRELIS [Suspect]
     Dosage: 800MG, TID, ORAL
     Route: 048
  2. PEGASYS (PEGINTERFERON ALFA-2A) [Concomitant]
  3. RIBAPAK (RIBAVIRIN) [Concomitant]
  4. LEXAPRO (ESCITALOPRAM OXALATE) TABLET, 10MG [Concomitant]
  5. TYLENOL (ACETAMINOPHEN) 325MG [Concomitant]

REACTIONS (1)
  - Dysgeusia [None]
